FAERS Safety Report 7425402-0 (Version None)
Quarter: 2011Q1

REPORT INFORMATION
  Report Type: 
  Country: None (occurrence: None)
  Receive Date: 20110302
  Receipt Date: 20101101
  Transmission Date: 20110831
  Serious: No
  Sender: FDA-Public Use
  Company Number: 017942

PATIENT
  Sex: Female
  Weight: 59 kg

DRUGS (6)
  1. EFFEXOR XR [Concomitant]
  2. IMURAN [Concomitant]
  3. CIMZIA [Suspect]
     Indication: CROHN'S DISEASE
     Dosage: (TWO SHOTS EVERY MONTH SUBCUTANEOUS), (TWO SHOTS EVERY MONTH SUBCUTANEOUS)
     Route: 058
     Dates: start: 20100721, end: 20100101
  4. CIMZIA [Suspect]
     Indication: CROHN'S DISEASE
     Dosage: (TWO SHOTS EVERY MONTH SUBCUTANEOUS), (TWO SHOTS EVERY MONTH SUBCUTANEOUS)
     Route: 058
     Dates: start: 20100101, end: 20100601
  5. ASACOL [Concomitant]
  6. PRENATAL VITAMINS /01549301/ [Concomitant]

REACTIONS (5)
  - HERPES ZOSTER [None]
  - PREGNANCY [None]
  - VOMITING [None]
  - FEELING HOT [None]
  - MALAISE [None]
